FAERS Safety Report 9852619 (Version 2)
Quarter: 2014Q1

REPORT INFORMATION
  Report Type: Spontaneous
  Country: GB (occurrence: GB)
  Receive Date: 20140129
  Receipt Date: 20140131
  Transmission Date: 20141002
  Serious: Yes (Life-Threatening, Other)
  Sender: FDA-Public Use
  Company Number: GB-JNJFOC-20140113313

PATIENT
  Age: 94 Year
  Sex: Female

DRUGS (2)
  1. XARELTO [Suspect]
     Indication: PRODUCT USED FOR UNKNOWN INDICATION
     Dosage: 15 MG OR 20 MG
     Route: 048
  2. BERIPLEX HS [Concomitant]
     Route: 065

REACTIONS (3)
  - Fall [Unknown]
  - Head banging [Unknown]
  - Subdural haematoma [Recovered/Resolved]
